FAERS Safety Report 25766384 (Version 1)
Quarter: 2025Q3

REPORT INFORMATION
  Report Type: Other
  Country: AU (occurrence: AU)
  Receive Date: 20250905
  Receipt Date: 20250905
  Transmission Date: 20251020
  Serious: Yes (Hospitalization, Other)
  Sender: MAYNE
  Company Number: AU-MAYNE PHARMA-2025MYN000546

PATIENT

DRUGS (4)
  1. TOLSURA [Suspect]
     Active Substance: ITRACONAZOLE
     Indication: Product used for unknown indication
     Dosage: 200 MG, Q12H
     Route: 048
     Dates: start: 20250618, end: 20250623
  2. RADIPRODIL [Suspect]
     Active Substance: RADIPRODIL
     Indication: Product used for unknown indication
     Dosage: 7.5 MG, Q8H
     Route: 048
     Dates: start: 20250610, end: 20250610
  3. RADIPRODIL [Suspect]
     Active Substance: RADIPRODIL
     Dosage: 15 MG, Q8H
     Route: 048
     Dates: start: 20250611, end: 20250614
  4. RADIPRODIL [Suspect]
     Active Substance: RADIPRODIL
     Dosage: 7.5 MG, Q8H
     Route: 048
     Dates: start: 20250623, end: 20250623

REACTIONS (1)
  - Suicidal ideation [Recovered/Resolved]

NARRATIVE: CASE EVENT DATE: 20250624
